FAERS Safety Report 22182798 (Version 1)
Quarter: 2023Q2

REPORT INFORMATION
  Report Type: Other
  Country: IN (occurrence: None)
  Receive Date: 20230406
  Receipt Date: 20230406
  Transmission Date: 20230721
  Serious: Yes (Death)
  Sender: FDA-Public Use
  Company Number: IN-ROCHE-3325828

PATIENT
  Age: 59 Year
  Sex: Male
  Weight: 75.1 kg

DRUGS (7)
  1. CELLCEPT [Suspect]
     Active Substance: MYCOPHENOLATE MOFETIL
     Indication: Renal transplant
     Route: 048
     Dates: start: 20110621, end: 202212
  2. PREDNISOLONE [Concomitant]
     Active Substance: PREDNISOLONE
  3. ALREX [Concomitant]
     Active Substance: LOTEPREDNOL ETABONATE
  4. DIOVAN [Concomitant]
     Active Substance: VALSARTAN
  5. ACILOC (INDIA) [Concomitant]
  6. ATORVASTATIN CALCIUM [Concomitant]
     Active Substance: ATORVASTATIN CALCIUM
  7. MINIPRESS [Concomitant]
     Active Substance: PRAZOSIN HYDROCHLORIDE

REACTIONS (1)
  - Death [Fatal]

NARRATIVE: CASE EVENT DATE: 20221201
